FAERS Safety Report 19228561 (Version 2)
Quarter: 2021Q3

REPORT INFORMATION
  Report Type: Spontaneous
  Country: US (occurrence: US)
  Receive Date: 20210506
  Receipt Date: 20210802
  Transmission Date: 20211014
  Serious: Yes (Other)
  Sender: FDA-Public Use
  Company Number: US-TEVA-2021-US-1907225

PATIENT
  Age: 49 Year
  Sex: Female

DRUGS (1)
  1. ROMIDEPSIN. [Suspect]
     Active Substance: ROMIDEPSIN
     Indication: PERIPHERAL T-CELL LYMPHOMA UNSPECIFIED
     Dosage: INTERVAL: ON DAYS 1, 8 AND 15 OF 28 DAYS CYCLE
     Route: 050

REACTIONS (4)
  - Fatigue [Unknown]
  - Thrombocytopenia [Unknown]
  - Nausea [Recovering/Resolving]
  - Off label use [Unknown]
